FAERS Safety Report 5629465-4 (Version None)
Quarter: 2008Q1

REPORT INFORMATION
  Report Type: 
  Country: None (occurrence: None)
  Receive Date: 20080218
  Receipt Date: 20080118
  Transmission Date: 20080703
  Serious: No
  Sender: FDA-Public Use
  Company Number: US-BAYER-200811321NA

PATIENT
  Age: 53 Year
  Sex: Male

DRUGS (9)
  1. LEVITRA [Suspect]
     Indication: ERECTILE DYSFUNCTION
     Dosage: TOTAL DAILY DOSE: 10 MG  UNIT DOSE: 20 MG
     Route: 048
     Dates: start: 20080112, end: 20080112
  2. LEVITRA [Suspect]
     Dosage: TOTAL DAILY DOSE: 10 MG  UNIT DOSE: 20 MG
     Route: 048
     Dates: start: 20080113, end: 20080113
  3. EFFEXOR [Concomitant]
  4. COZAAR [Concomitant]
  5. TEGRETOL [Concomitant]
  6. CLONAZEPAM [Concomitant]
  7. MIRTAZAPINE [Concomitant]
  8. ZYPREXA [Concomitant]
  9. VYTORIN [Concomitant]

REACTIONS (1)
  - ERECTILE DYSFUNCTION [None]
